FAERS Safety Report 7517193-X (Version None)
Quarter: 2011Q2

REPORT INFORMATION
  Report Type: 
  Country: None (occurrence: None)
  Receive Date: 20110601
  Receipt Date: 20110524
  Transmission Date: 20111010
  Serious: Yes (Hospitalization, Other)
  Sender: FDA-Public Use
  Company Number: FR-PFIZER INC-2011111017

PATIENT
  Age: 91 Year
  Sex: Female

DRUGS (3)
  1. SINTROM [Suspect]
     Dosage: 3 MG, 1X/DAY
     Route: 048
  2. ZOLOFT [Suspect]
     Dosage: 25 MG, 1X/DAY
     Route: 048
     Dates: end: 20101207
  3. VASTAREL [Concomitant]
     Dosage: 75 MG, 1X/DAY
     Dates: end: 20101207

REACTIONS (3)
  - LEFT VENTRICULAR FAILURE [None]
  - FALL [None]
  - CEREBRAL HAEMATOMA [None]
